FAERS Safety Report 7511017-2 (Version None)
Quarter: 2011Q2

REPORT INFORMATION
  Report Type: 
  Country: None (occurrence: None)
  Receive Date: 20110531
  Receipt Date: 20110523
  Transmission Date: 20111010
  Serious: No
  Sender: FDA-Public Use
  Company Number: US-PFIZER INC-2011111980

PATIENT
  Sex: Male
  Weight: 97.052 kg

DRUGS (2)
  1. MORPHINE SULFATE [Suspect]
     Dosage: 30 MG, 2X/DAY
     Dates: start: 20110101
  2. EMBEDA [Concomitant]
     Indication: BACK PAIN
     Dosage: UNK
     Dates: end: 20110101

REACTIONS (5)
  - DRUG INEFFECTIVE [None]
  - DISEASE RECURRENCE [None]
  - IRRITABILITY [None]
  - PAIN [None]
  - BACK PAIN [None]
